FAERS Safety Report 6098082-7 (Version None)
Quarter: 2009Q1

REPORT INFORMATION
  Report Type: 
  Country: None (occurrence: None)
  Receive Date: 20090227
  Receipt Date: 20090225
  Transmission Date: 20090719
  Serious: Yes (Hospitalization, Other)
  Sender: FDA-Public Use
  Company Number: US-RB-010263-09

PATIENT
  Sex: Male
  Weight: 67.5 kg

DRUGS (5)
  1. SUBOXONE [Suspect]
     Route: 048
     Dates: start: 20090219, end: 20090220
  2. SUBOXONE [Suspect]
     Route: 060
     Dates: start: 20090218, end: 20090218
  3. SUBOXONE [Suspect]
     Route: 060
     Dates: start: 20090221
  4. CYMBALTA [Concomitant]
     Indication: DEPRESSION
     Dosage: DOSING INFORMATION UNKNOWN.
     Route: 065
  5. AMBIEN [Concomitant]
     Indication: INSOMNIA
     Route: 065

REACTIONS (3)
  - HALLUCINATIONS, MIXED [None]
  - WITHDRAWAL SYNDROME [None]
  - WRONG TECHNIQUE IN DRUG USAGE PROCESS [None]
